FAERS Safety Report 9229037 (Version 1)
Quarter: 2013Q2

REPORT INFORMATION
  Report Type: Spontaneous
  Country: US (occurrence: US)
  Receive Date: 20130412
  Receipt Date: 20130412
  Transmission Date: 20140414
  Serious: Yes (Other)
  Sender: FDA-Public Use
  Company Number: CHPA2013US006017

PATIENT
  Age: 53 Year
  Sex: Female

DRUGS (5)
  1. PRIVATE LABEL [Suspect]
     Indication: SMOKING CESSATION THERAPY
     Dosage: 21 MG, QD
     Route: 062
     Dates: start: 20130404
  2. PRIVATE LABEL [Suspect]
     Dosage: 7 MG, UNK
     Route: 062
  3. PRIVATE LABEL [Suspect]
     Dosage: 14 MG, UNK
     Route: 062
  4. PRIVATE LABEL [Suspect]
     Dosage: 21 MG, UNK
     Route: 062
  5. CHANTIX [Concomitant]

REACTIONS (3)
  - IgA nephropathy [Not Recovered/Not Resolved]
  - Stress [Recovered/Resolved]
  - Expired drug administered [Unknown]
